FAERS Safety Report 4351507-7 (Version None)
Quarter: 2004Q2

REPORT INFORMATION
  Report Type: 
  Country: None (occurrence: None)
  Receive Date: 20040428
  Receipt Date: 20040414
  Transmission Date: 20050107
  Serious: Yes (Other)
  Sender: FDA-Public Use
  Company Number: CEL-2004-00675-ROC

PATIENT
  Age: 26 Year
  Sex: Male

DRUGS (1)
  1. METADATE CD [Suspect]
     Dosage: 20MG DAILY PO
     Route: 048
     Dates: start: 20020101

REACTIONS (3)
  - FACIAL PALSY [None]
  - MUSCLE TWITCHING [None]
  - TYMPANIC MEMBRANE PERFORATION [None]
